FAERS Safety Report 20735267 (Version 2)
Quarter: 2022Q2

REPORT INFORMATION
  Report Type: Report from Study
  Country: CA (occurrence: CA)
  Receive Date: 20220421
  Receipt Date: 20220422
  Transmission Date: 20220721
  Serious: Yes (Other)
  Sender: FDA-Public Use
  Company Number: CA-HLS-202200774

PATIENT
  Age: 64 Year
  Sex: Female

DRUGS (1)
  1. CLOZARIL [Suspect]
     Active Substance: CLOZAPINE
     Indication: Product used for unknown indication
     Route: 048
     Dates: start: 19990907

REACTIONS (3)
  - Nausea [Unknown]
  - COVID-19 [Unknown]
  - Vomiting [Unknown]

NARRATIVE: CASE EVENT DATE: 20220331
